FAERS Safety Report 10400561 (Version 1)
Quarter: 2014Q3

REPORT INFORMATION
  Report Type: Spontaneous
  Country: US (occurrence: US)
  Receive Date: 20140821
  Receipt Date: 20140821
  Transmission Date: 20150326
  Serious: No
  Sender: FDA-Public Use
  Company Number: US-ASTRAZENECA-2013SE70288

PATIENT
  Age: 92 Year
  Sex: Female
  Weight: 78.9 kg

DRUGS (6)
  1. SYMBICORT [Suspect]
     Active Substance: BUDESONIDE\FORMOTEROL FUMARATE DIHYDRATE
     Indication: CHRONIC OBSTRUCTIVE PULMONARY DISEASE
     Dosage: 320MCG BID
     Route: 055
     Dates: start: 20130914
  2. TEMAZAPAM [Concomitant]
     Indication: SLEEP DISORDER
  3. SYMBICORT [Suspect]
     Active Substance: BUDESONIDE\FORMOTEROL FUMARATE DIHYDRATE
     Indication: BRONCHITIS
     Dosage: 320MCG BID
     Route: 055
     Dates: start: 20130914
  4. IBUPROFEN. [Concomitant]
     Active Substance: IBUPROFEN
     Indication: PAIN
     Dosage: PRN
  5. METAMUCIL [Concomitant]
     Active Substance: PLANTAGO SEED
     Indication: INCREASED UPPER AIRWAY SECRETION
  6. TYLENOL [Concomitant]
     Active Substance: ACETAMINOPHEN
     Dosage: PRN

REACTIONS (5)
  - Choking [Unknown]
  - Insomnia [Unknown]
  - Malaise [Unknown]
  - Productive cough [Unknown]
  - Cough [Unknown]
